FAERS Safety Report 16932310 (Version 2)
Quarter: 2019Q4

REPORT INFORMATION
  Report Type: Report from Study
  Country: US (occurrence: US)
  Receive Date: 20191017
  Receipt Date: 20191029
  Transmission Date: 20200122
  Serious: Yes (Hospitalization, Other)
  Sender: FDA-Public Use
  Company Number: US-GILEAD-2019-0433472

PATIENT
  Age: 66 Year
  Sex: Male

DRUGS (2)
  1. IMMUNOGLOBULIN HUMAN NORMAL [Concomitant]
     Active Substance: HUMAN IMMUNOGLOBULIN G
     Dosage: UNK
     Route: 042
  2. IDELALISIB [Suspect]
     Active Substance: IDELALISIB
     Indication: CHRONIC LYMPHOCYTIC LEUKAEMIA
     Dosage: 150 MG, BID
     Route: 048
     Dates: start: 201811

REACTIONS (4)
  - Abdominal mass [Unknown]
  - Atypical pneumonia [Unknown]
  - Splenomegaly [Unknown]
  - Pneumonia [Unknown]

NARRATIVE: CASE EVENT DATE: 20191012
